FAERS Safety Report 6751037-9 (Version None)
Quarter: 2010Q2

REPORT INFORMATION
  Report Type: 
  Country: None (occurrence: None)
  Receive Date: 20100602
  Receipt Date: 20100518
  Transmission Date: 20101027
  Serious: Yes (Other)
  Sender: FDA-Public Use
  Company Number: NL-CELGENEUS-114-21880-08070017

PATIENT
  Sex: Female

DRUGS (2)
  1. REVLIMID [Suspect]
     Indication: MULTIPLE MYELOMA
     Route: 048
     Dates: start: 20080419, end: 20080620
  2. PLANTAGO OVASTA [Concomitant]
     Route: 048
     Dates: start: 20080606, end: 20080620

REACTIONS (1)
  - ACUTE GRAFT VERSUS HOST DISEASE IN LIVER [None]
